FAERS Safety Report 7785912-3 (Version None)
Quarter: 2011Q3

REPORT INFORMATION
  Report Type: 
  Country: None (occurrence: None)
  Receive Date: 20110929
  Receipt Date: 20110920
  Transmission Date: 20111222
  Serious: Yes (Hospitalization, Other)
  Sender: FDA-Public Use
  Company Number: GB-ROCHE-793462

PATIENT
  Sex: Male
  Weight: 67.1 kg

DRUGS (4)
  1. CISPLATIN [Suspect]
     Indication: GASTRIC CANCER
     Dosage: LAST DOSE PRIOR TO SAE: 01 MARCH 2011
     Route: 042
  2. EPIRUBICIN HYDROCHLORIDE [Suspect]
     Indication: GASTRIC CANCER
     Dosage: LAST DOSE PRIOR TO SAE: 01 MARCH 2011
     Route: 042
  3. AVASTIN [Suspect]
     Indication: GASTRIC CANCER
     Dosage: LAST DOSE PRIOR TO SAE: 20 OCTOBER 2010
     Route: 042
  4. XELODA [Suspect]
     Indication: GASTRIC CANCER
     Dosage: LAST DOSE PRIOR TO SAE: 01 MARCH 2011
     Route: 048

REACTIONS (2)
  - IMPAIRED HEALING [None]
  - VIITH NERVE PARALYSIS [None]
